FAERS Safety Report 8041724-7 (Version None)
Quarter: 2012Q1

REPORT INFORMATION
  Report Type: 
  Country: None (occurrence: None)
  Receive Date: 20120112
  Receipt Date: 20120106
  Transmission Date: 20120608
  Serious: Yes (Death)
  Sender: FDA-Public Use
  Company Number: CN-ASTELLAS-2011JP009460

PATIENT
  Sex: Female

DRUGS (4)
  1. TACROLIMUS [Suspect]
     Indication: LUPUS NEPHRITIS
     Dosage: 2 MG, BID
     Route: 048
     Dates: start: 20111110, end: 20111218
  2. LEFLUNOMIDE [Suspect]
     Indication: LUPUS NEPHRITIS
     Dosage: 30 MG, UID/QD
     Route: 048
     Dates: start: 20111110, end: 20111218
  3. LACIDIPINE [Concomitant]
     Dosage: 4 MG, BID
     Route: 065
  4. PREDNISONE TAB [Concomitant]
     Dosage: 50 MG, UID/QD
     Route: 065
     Dates: start: 20111110, end: 20111218

REACTIONS (9)
  - RENAL INJURY [None]
  - THROMBOCYTOPENIA [None]
  - LIVER FUNCTION TEST ABNORMAL [None]
  - ACUTE RESPIRATORY FAILURE [None]
  - KETOACIDOSIS [None]
  - LEUKOPENIA [None]
  - DEATH [None]
  - PYREXIA [None]
  - ERYTHROPENIA [None]
